FAERS Safety Report 9378958 (Version 1)
Quarter: 2013Q1

REPORT INFORMATION
  Report Type: Spontaneous
  Country: US (occurrence: None)
  Receive Date: 20130315
  Receipt Date: 20130315
  Transmission Date: 20140127
  Serious: Yes (Death)
  Sender: FDA-Public Use
  Company Number: 35668

PATIENT
  Age: 60 Year
  Sex: Female
  Weight: 48.99 kg

DRUGS (7)
  1. GLASSIA [Suspect]
     Indication: ALPHA-1 ANTI-TRYPSIN DEFICIENCY
     Route: 042
     Dates: start: 201209, end: 20130111
  2. OXYCODONE [Concomitant]
  3. KLONOPIN [Concomitant]
  4. CARBATROL [Concomitant]
  5. IMDUR [Concomitant]
  6. NEURONTIN [Concomitant]
  7. NEXIUM [Concomitant]

REACTIONS (1)
  - Death [None]
